FAERS Safety Report 6317938-0 (Version None)
Quarter: 2009Q3

REPORT INFORMATION
  Report Type: 
  Country: None (occurrence: None)
  Receive Date: 20090821
  Receipt Date: 20090810
  Transmission Date: 20100115
  Serious: Yes (Other)
  Sender: FDA-Public Use
  Company Number: US-JNJFOC-20090709781

PATIENT
  Age: 60 Year
  Sex: Female
  Weight: 53.52 kg

DRUGS (3)
  1. NUCYNTA [Suspect]
     Indication: NEUROPATHY PERIPHERAL
     Dosage: 'ONLY TOOK FOUR TABLETS'
     Route: 048
  2. FENTANYL TRANSDERMAL SYSTEM [Suspect]
     Indication: NEUROPATHY PERIPHERAL
     Route: 062
  3. XANAX [Concomitant]

REACTIONS (4)
  - ADVERSE EVENT [None]
  - BODY TEMPERATURE INCREASED [None]
  - INSOMNIA [None]
  - TREMOR [None]
